FAERS Safety Report 13636167 (Version 1)
Quarter: 2017Q2

REPORT INFORMATION
  Report Type: Spontaneous
  Country: US (occurrence: US)
  Receive Date: 20170531
  Receipt Date: 20170531
  Transmission Date: 20170830
  Serious: No
  Sender: FDA-Public Use
  Company Number: US-ASTELLAS-1789990

PATIENT
  Sex: Female

DRUGS (15)
  1. DEXAMETHASONE. [Concomitant]
     Active Substance: DEXAMETHASONE
  2. OXYCODONE [Concomitant]
     Active Substance: OXYCODONE
  3. VALIUM [Concomitant]
     Active Substance: DIAZEPAM
  4. ATIVAN [Concomitant]
     Active Substance: LORAZEPAM
  5. LOPRESSOR [Concomitant]
     Active Substance: METOPROLOL TARTRATE
  6. ASPIRIN. [Concomitant]
     Active Substance: ASPIRIN
  7. COZAAR [Concomitant]
     Active Substance: LOSARTAN POTASSIUM
  8. ELIQUIS [Concomitant]
     Active Substance: APIXABAN
  9. ZOFRAN [Concomitant]
     Active Substance: ONDANSETRON HYDROCHLORIDE
  10. ZOCOR [Concomitant]
     Active Substance: SIMVASTATIN
  11. TARCEVA [Suspect]
     Active Substance: ERLOTINIB HYDROCHLORIDE
     Indication: LUNG NEOPLASM MALIGNANT
     Dosage: ONGOING
     Route: 048
     Dates: start: 20160621
  12. FOLIC ACID. [Concomitant]
     Active Substance: FOLIC ACID
  13. PROMETHAZINE [Concomitant]
     Active Substance: PROMETHAZINE\PROMETHAZINE HYDROCHLORIDE
  14. PRAVASTATIN. [Concomitant]
     Active Substance: PRAVASTATIN
  15. REMERON [Concomitant]
     Active Substance: MIRTAZAPINE

REACTIONS (6)
  - Acne [Unknown]
  - Alopecia [Unknown]
  - Dyspnoea [Unknown]
  - Rash [Unknown]
  - Nausea [Not Recovered/Not Resolved]
  - Hair growth abnormal [Unknown]
